FAERS Safety Report 10867092 (Version 3)
Quarter: 2015Q3

REPORT INFORMATION
  Report Type: Spontaneous
  Country: US (occurrence: US)
  Receive Date: 20150225
  Receipt Date: 20150810
  Transmission Date: 20151125
  Serious: Yes (Hospitalization)
  Sender: FDA-Public Use
  Company Number: US-BAYER-2015-027410

PATIENT
  Age: 29 Year
  Sex: Female
  Weight: 39 kg

DRUGS (1)
  1. MIRENA [Suspect]
     Active Substance: LEVONORGESTREL
     Indication: CONTRACEPTION
     Dosage: 20 MCG/24HR, CONT
     Route: 015
     Dates: start: 20080828, end: 20140217

REACTIONS (7)
  - Pain [None]
  - Device use error [None]
  - Uterine perforation [None]
  - Device dislocation [None]
  - Injury [None]
  - Off label use of device [None]
  - Gastrointestinal injury [None]

NARRATIVE: CASE EVENT DATE: 201402
